FAERS Safety Report 8398870-8 (Version None)
Quarter: 2012Q2

REPORT INFORMATION
  Report Type: 
  Country: None (occurrence: None)
  Receive Date: 20120531
  Receipt Date: 20120514
  Transmission Date: 20120825
  Serious: Yes (Other)
  Sender: FDA-Public Use
  Company Number: US-AMGEN-QUU438605

PATIENT
  Age: 80 Year
  Sex: Male

DRUGS (4)
  1. CORTICOSTEROID NOS [Concomitant]
     Dosage: UNK UNK, UNK
     Dates: start: 20100114
  2. NPLATE [Suspect]
     Indication: IDIOPATHIC THROMBOCYTOPENIC PURPURA
     Dosage: 83 UNK, QWK
     Dates: start: 20100303, end: 20100908
  3. IMURAN [Concomitant]
     Dosage: UNK UNK, UNK
     Dates: start: 20100120
  4. RITUXAN [Concomitant]
     Dosage: 250 UNK, UNK

REACTIONS (2)
  - SPLENECTOMY [None]
  - DRUG INEFFECTIVE [None]
